FAERS Safety Report 16425647 (Version 1)
Quarter: 2019Q2

REPORT INFORMATION
  Report Type: Spontaneous
  Country: NL (occurrence: NL)
  Receive Date: 20190613
  Receipt Date: 20190613
  Transmission Date: 20190711
  Serious: Yes (Congenital Anomaly)
  Sender: FDA-Public Use
  Company Number: NL-MYLANLABS-2019M1053842

PATIENT
  Sex: Female
  Weight: 3 kg

DRUGS (2)
  1. FOLIUMZUUR [Concomitant]
     Active Substance: FOLIC ACID
     Dosage: UNK
  2. ATORVASTATIN [Suspect]
     Active Substance: ATORVASTATIN
     Indication: HYPERCHOLESTEROLAEMIA
     Dosage: 1 KEER PER DAG 1 TABLET
     Route: 064

REACTIONS (2)
  - Congenital bowing of long bones [Not Recovered/Not Resolved]
  - Foetal exposure during pregnancy [Recovered/Resolved]
